FAERS Safety Report 8183140-3 (Version None)
Quarter: 2012Q1

REPORT INFORMATION
  Report Type: 
  Country: None (occurrence: None)
  Receive Date: 20120201
  Receipt Date: 20101210
  Transmission Date: 20120608
  Serious: No
  Sender: FDA-Public Use
  Company Number: 259675USA

PATIENT
  Sex: Female

DRUGS (1)
  1. PROPOXYPHENE NAPSYLATE W/ ACETAMINOPHEN [Suspect]
     Indication: PAIN
     Dosage: 200 MG (100 MG, 2 IN 1 D), ORAL
     Route: 048

REACTIONS (4)
  - CARDIAC DISORDER [None]
  - ASTHENIA [None]
  - HEART RATE IRREGULAR [None]
  - DYSPNOEA [None]
